FAERS Safety Report 9408076 (Version 1)
Quarter: 2013Q3

REPORT INFORMATION
  Report Type: Spontaneous
  Country: DE (occurrence: None)
  Receive Date: 20130716
  Receipt Date: 20130716
  Transmission Date: 20140515
  Serious: Yes (Other)
  Sender: FDA-Public Use
  Company Number: AUR-APL-2013-05837

PATIENT
  Age: 75 Year
  Sex: Female

DRUGS (2)
  1. ALENDRONIC ACID [Suspect]
     Indication: OSTEOPOROSIS
     Dosage: 70MG, 1 IN 1 WK
  2. DENOSUMAB (DENOSUMAB) (RANMARK)) [Suspect]
     Indication: OSTEOPOROSIS
     Route: 058

REACTIONS (1)
  - Osteonecrosis of jaw [None]
